FAERS Safety Report 25118834 (Version 1)
Quarter: 2025Q1

REPORT INFORMATION
  Report Type: Spontaneous
  Country: CN (occurrence: CN)
  Receive Date: 20250325
  Receipt Date: 20250325
  Transmission Date: 20250409
  Serious: Yes (Hospitalization)
  Sender: RANBAXY
  Company Number: CN-SUN PHARMACEUTICAL INDUSTRIES LTD-2025R1-500464

PATIENT
  Age: 65 Year
  Sex: Male

DRUGS (2)
  1. TRAMADOL [Suspect]
     Active Substance: TRAMADOL
     Indication: Headache
     Route: 030
  2. PREGABALIN [Suspect]
     Active Substance: PREGABALIN
     Indication: Headache
     Route: 048

REACTIONS (4)
  - Drug ineffective [Unknown]
  - Condition aggravated [Unknown]
  - Dysarthria [Recovering/Resolving]
  - Nystagmus [Recovering/Resolving]
